FAERS Safety Report 8795466 (Version 2)
Quarter: 2012Q4

REPORT INFORMATION
  Report Type: 
  Country: US (occurrence: US)
  Receive Date: 20120917
  Receipt Date: 20121017
  Transmission Date: 20130627
  Serious: Yes (Death)
  Sender: FDA-Public Use
  Company Number: US-ROCHE-1129291

PATIENT
  Sex: Male

DRUGS (2)
  1. AVASTIN [Suspect]
     Indication: COLON CANCER
     Route: 042
     Dates: start: 20071031, end: 20071212
  2. AVASTIN [Suspect]
     Indication: METASTASES TO LIVER
     Route: 042
     Dates: start: 20081031, end: 20081201

REACTIONS (2)
  - Death [Fatal]
  - Disease progression [Unknown]
